FAERS Safety Report 4530659-X (Version None)
Quarter: 2004Q4

REPORT INFORMATION
  Report Type: 
  Country: None (occurrence: None)
  Receive Date: 20041216
  Receipt Date: 20041129
  Transmission Date: 20050328
  Serious: Yes (Hospitalization)
  Sender: FDA-Public Use
  Company Number: FR_041105330

PATIENT
  Age: 67 Year
  Sex: Female

DRUGS (2)
  1. EVISTA [Suspect]
     Indication: OSTEOPOROSIS
     Dosage: 60 MG/1 DAY
     Dates: start: 20031001, end: 20041028
  2. AMLODIPINE BESYLATE [Concomitant]

REACTIONS (5)
  - ABDOMINAL PAIN UPPER [None]
  - EOSINOPHILIA [None]
  - FAECES PALE [None]
  - HEPATOCELLULAR DAMAGE [None]
  - JAUNDICE [None]
